FAERS Safety Report 8492411-2 (Version None)
Quarter: 2012Q3

REPORT INFORMATION
  Report Type: 
  Country: None (occurrence: None)
  Receive Date: 20120706
  Receipt Date: 20120621
  Transmission Date: 20120928
  Serious: Yes (Hospitalization)
  Sender: FDA-Public Use
  Company Number: US-ROCHE-1080732

PATIENT
  Age: 66 Year
  Sex: Female

DRUGS (5)
  1. PHENOBARBITAL TAB [Concomitant]
     Indication: PARTIAL SEIZURES
  2. VALIUM [Suspect]
     Indication: PARTIAL SEIZURES
     Route: 048
  3. DIAZEPAM [Suspect]
     Indication: PARTIAL SEIZURES
     Route: 048
  4. WELLBUTRIN [Concomitant]
  5. CELEXA [Concomitant]

REACTIONS (5)
  - NAUSEA [None]
  - AURA [None]
  - UNEVALUABLE EVENT [None]
  - CONVULSION [None]
  - JOINT ARTHROPLASTY [None]
